FAERS Safety Report 11184582 (Version 1)
Quarter: 2015Q2

REPORT INFORMATION
  Report Type: Spontaneous
  Country: CN (occurrence: None)
  Receive Date: 20150610
  Receipt Date: 20150610
  Transmission Date: 20150821
  Serious: Yes (Other)
  Sender: FDA-Public Use
  Company Number: 2015AMD00084

PATIENT
  Age: 65 Year
  Sex: Male

DRUGS (1)
  1. ARTICAINE HYDROCHLORIDE AND ADRENALINE [Suspect]
     Active Substance: ARTICAINE\EPINEPHRINE
     Indication: LOCAL ANAESTHESIA
     Route: 004

REACTIONS (4)
  - Hypersensitivity [None]
  - Blood pressure increased [None]
  - Chest discomfort [None]
  - Skin haemorrhage [None]
